FAERS Safety Report 10263223 (Version 2)
Quarter: 2014Q2

REPORT INFORMATION
  Report Type: Report from Study
  Country: US (occurrence: US)
  Receive Date: 20140626
  Receipt Date: 20140626
  Transmission Date: 20141212
  Serious: Yes (Other)
  Sender: FDA-Public Use
  Company Number: US-MYLANLABS-2014S1009289

PATIENT
  Age: 42 Year
  Sex: Male

DRUGS (9)
  1. CLOZAPINE TABLETS [Suspect]
     Indication: SCHIZOPHRENIA, PARANOID TYPE
     Dates: end: 20140402
  2. BENZATROPINE [Concomitant]
     Route: 048
  3. DOCUSATE [Concomitant]
     Route: 048
  4. FENOFIBRATE [Concomitant]
     Route: 048
  5. FERROUS SULFATE [Concomitant]
     Route: 048
  6. GABAPENTIN [Concomitant]
     Route: 048
  7. LANSOPRAZOLE [Concomitant]
     Route: 048
  8. SERTRALINE [Concomitant]
     Route: 048
  9. SIMVASTATIN [Concomitant]
     Route: 048

REACTIONS (2)
  - Granulocytopenia [Recovered/Resolved]
  - Leukopenia [Recovered/Resolved]
